FAERS Safety Report 21484762 (Version 1)
Quarter: 2022Q4

REPORT INFORMATION
  Report Type: Spontaneous
  Country: FR (occurrence: FR)
  Receive Date: 20221020
  Receipt Date: 20221020
  Transmission Date: 20230113
  Serious: Yes (Hospitalization)
  Sender: FDA-Public Use
  Company Number: None

PATIENT
  Age: 67 Year
  Sex: Male
  Weight: 76 kg

DRUGS (14)
  1. FENOFIBRATE [Suspect]
     Active Substance: FENOFIBRATE
     Indication: Dyslipidaemia
     Dosage: THERAPY START DATE : ASKU
     Route: 065
  2. DOCETAXEL [Suspect]
     Active Substance: DOCETAXEL
     Indication: Prostate cancer metastatic
     Dosage: UNIT DOSE : 1 DF, FREQUENCY TIME : 21 DAY, DURATION : 4 MONTH
     Dates: start: 20220316, end: 202207
  3. SPIRONOLACTONE [Suspect]
     Active Substance: SPIRONOLACTONE
     Indication: Hypertension
     Dosage: THERAPY START DATE : ASKU
  4. VERAPAMIL HYDROCHLORIDE [Suspect]
     Active Substance: VERAPAMIL HYDROCHLORIDE
     Indication: Hypertension
     Dosage: UNIT DOSE : 120 MG, THERAPY START DATE : ASKU, FREQUENCY TIME : 1 DAY
  5. NEFOPAM HYDROCHLORIDE [Suspect]
     Active Substance: NEFOPAM HYDROCHLORIDE
     Indication: Pain
     Dosage: FREQUENCY TIME : 1 DAY, UNIT DOSE : 20 MG, DURATION : 1 DAY
     Dates: start: 20220901, end: 20220901
  6. DEXAMETHASONE [Suspect]
     Active Substance: DEXAMETHASONE
     Indication: General anaesthesia
     Dosage: UNIT DOSE: 8 MG, DURATION : 1 DAY
     Dates: start: 20220901, end: 20220901
  7. HYDROCHLOROTHIAZIDE\IRBESARTAN [Suspect]
     Active Substance: HYDROCHLOROTHIAZIDE\IRBESARTAN
     Indication: Hypertension
     Dosage: IRBESARTAN HYDROCHLOROTHIAZIDE BIOGARAN 300 MG/25 MG FILM-COATED TABLETS, THERAPY START DATE : ASKU,
  8. KETAMINE [Suspect]
     Active Substance: KETAMINE
     Indication: General anaesthesia
     Dosage: UNIT DOSE : 10 MG, DURATION : 1 DAY
     Dates: start: 20220901, end: 20220901
  9. PROPOFOL [Suspect]
     Active Substance: PROPOFOL
     Indication: General anaesthesia
     Dosage: UNIT DOSE : 200 MG, DURATION : 1 DAY
     Dates: start: 20220901, end: 20220901
  10. ATRACURIUM [Suspect]
     Active Substance: ATRACURIUM
     Indication: General anaesthesia
     Dosage: UNIT DOSE : 40 MG, DURATION : 1 DAY
     Dates: start: 20220901, end: 20220901
  11. CALCIUM CHLORIDE\MAGNESIUM CHLORIDE\MALIC ACID\POTASSIUM CHLORIDE\SODI [Suspect]
     Active Substance: CALCIUM CHLORIDE\MAGNESIUM CHLORIDE\MALIC ACID\POTASSIUM CHLORIDE\SODIUM ACETATE\SODIUM CHLORIDE
     Indication: General anaesthesia
     Dosage: ISOFUNDINE, UNIT DOSE : 500ML, DURATION : 1 DAY
     Dates: start: 20220901, end: 20220901
  12. EPHEDRINE [Suspect]
     Active Substance: EPHEDRINE
     Indication: Hypotension
     Dosage: UNIT DOSE : 6 MG, DURATION : 1 DAY
     Dates: start: 20220901, end: 20220901
  13. CEFAZOLIN SODIUM [Suspect]
     Active Substance: CEFAZOLIN SODIUM
     Indication: Antibiotic prophylaxis
     Dosage: UNIT DOSE : 2 GM, DURATION : 1 DAY
     Dates: start: 20220901, end: 20220901
  14. SUFENTANIL [Suspect]
     Active Substance: SUFENTANIL
     Indication: General anaesthesia
     Dosage: UNIT DOSE : 35 UG, DURATION : 1 DAY
     Dates: start: 20220901, end: 20220901

REACTIONS (1)
  - Embolic stroke [Recovering/Resolving]

NARRATIVE: CASE EVENT DATE: 20220901
